FAERS Safety Report 12555416 (Version 3)
Quarter: 2016Q4

REPORT INFORMATION
  Report Type: Spontaneous
  Country: GB (occurrence: GB)
  Receive Date: 20160714
  Receipt Date: 20161114
  Transmission Date: 20170207
  Serious: Yes (Hospitalization, Other)
  Sender: FDA-Public Use
  Company Number: GB-ACCORD-042305

PATIENT
  Age: 89 Year
  Sex: Female

DRUGS (3)
  1. LISINOPRIL. [Suspect]
     Active Substance: LISINOPRIL
     Indication: ESSENTIAL HYPERTENSION
     Route: 048
     Dates: end: 20160619
  2. PARACETAMOL [Concomitant]
     Active Substance: ACETAMINOPHEN
  3. SENNA ALEXANDRINA [Concomitant]
     Active Substance: SENNA LEAF

REACTIONS (4)
  - Confusional state [Unknown]
  - Pain in extremity [Unknown]
  - Inappropriate antidiuretic hormone secretion [Recovering/Resolving]
  - Chondrocalcinosis pyrophosphate [Unknown]
